FAERS Safety Report 4781685-7 (Version None)
Quarter: 2005Q3

REPORT INFORMATION
  Report Type: 
  Country: None (occurrence: None)
  Receive Date: 20050927
  Receipt Date: 20050909
  Transmission Date: 20060218
  Serious: Yes (Death, Hospitalization, Other)
  Sender: FDA-Public Use
  Company Number: JP_050907556

PATIENT
  Age: 52 Year
  Sex: Male
  Weight: 40 kg

DRUGS (3)
  1. GEMZAR [Suspect]
     Indication: PLEURAL MESOTHELIOMA MALIGNANT
     Dosage: 800 MG/M2 OTHER
     Route: 050
  2. CISPLATIN [Concomitant]
  3. VINORELBINE [Concomitant]

REACTIONS (10)
  - BONE MARROW DEPRESSION [None]
  - CARDIAC ARREST [None]
  - DYSPNOEA [None]
  - GENERAL PHYSICAL HEALTH DETERIORATION [None]
  - HEPATIC FUNCTION ABNORMAL [None]
  - MALAISE [None]
  - PLEURAL EFFUSION [None]
  - PULMONARY HYPERTENSION [None]
  - PYREXIA [None]
  - RESPIRATORY ARREST [None]
